FAERS Safety Report 9073935 (Version 1)
Quarter: 2013Q1

REPORT INFORMATION
  Report Type: Spontaneous
  Country: US (occurrence: US)
  Receive Date: 20130128
  Receipt Date: 20130128
  Transmission Date: 20140127
  Serious: No
  Sender: FDA-Public Use
  Company Number: US-ABBOTT-12P-163-0916559-00

PATIENT
  Sex: Female
  Weight: 64.92 kg

DRUGS (2)
  1. HUMIRA 40 MG/0.8 ML PEN [Suspect]
     Indication: COLITIS ULCERATIVE
     Route: 058
     Dates: start: 201011
  2. PRILOSEC [Concomitant]
     Indication: GASTROOESOPHAGEAL REFLUX DISEASE

REACTIONS (4)
  - Rash maculo-papular [Not Recovered/Not Resolved]
  - Off label use [Not Recovered/Not Resolved]
  - Rash erythematous [Not Recovered/Not Resolved]
  - Colitis ulcerative [Not Recovered/Not Resolved]
